FAERS Safety Report 13195195 (Version 1)
Quarter: 2017Q1

REPORT INFORMATION
  Report Type: Spontaneous
  Country: US (occurrence: US)
  Receive Date: 20170208
  Receipt Date: 20170208
  Transmission Date: 20170428
  Serious: Yes (Other)
  Sender: FDA-Public Use
  Company Number: US-AMGEN-USASP2017016762

PATIENT
  Age: 67 Year
  Sex: Female
  Weight: 88.89 kg

DRUGS (11)
  1. COENZYME [Concomitant]
     Active Substance: UBIDECARENONE
     Dosage: 1 UNK, QD
     Dates: start: 20160908
  2. XGEVA [Suspect]
     Active Substance: DENOSUMAB
     Indication: METASTASES TO BONE
  3. LISINOPRIL. [Concomitant]
     Active Substance: LISINOPRIL
     Dosage: 20 MG, QD
     Dates: start: 20160908
  4. TURMERIC [Concomitant]
     Active Substance: TURMERIC
     Dosage: 201 MG, QD
     Dates: start: 20160908
  5. XGEVA [Suspect]
     Active Substance: DENOSUMAB
     Indication: INVASIVE BREAST CARCINOMA
     Route: 065
  6. IBRANCE [Suspect]
     Active Substance: PALBOCICLIB
     Indication: PRODUCT USED FOR UNKNOWN INDICATION
     Dosage: 120 MG, QD FOR 28 DAYS
     Route: 065
     Dates: start: 20161213
  7. ZOMETA [Concomitant]
     Active Substance: ZOLEDRONIC ACID
     Dosage: 4 MG/5 ML, QMO
     Route: 042
     Dates: start: 20140122
  8. FASLODEX [Concomitant]
     Active Substance: FULVESTRANT
     Dosage: UNK
     Dates: start: 20160921
  9. VITAMIN D [Concomitant]
     Active Substance: CHOLECALCIFEROL
     Dosage: 2000 IU, QD
     Dates: start: 20160908
  10. HYDROCHLOROTHIAZIDE. [Concomitant]
     Active Substance: HYDROCHLOROTHIAZIDE
     Dosage: 12.5 MG, QD
     Dates: start: 20160908
  11. LETROZOLE. [Concomitant]
     Active Substance: LETROZOLE
     Dosage: 2.5 MG, QD
     Dates: start: 20140121

REACTIONS (9)
  - Large intestine polyp [Recovered/Resolved]
  - Fatigue [Unknown]
  - Asthenia [Unknown]
  - Neutropenia [Unknown]
  - Weight increased [Recovered/Resolved]
  - Dyspepsia [Unknown]
  - Bone pain [Recovering/Resolving]
  - Pain [Unknown]
  - Anxiety [Unknown]
